FAERS Safety Report 12735311 (Version 1)
Quarter: 2016Q3

REPORT INFORMATION
  Report Type: Spontaneous
  Country: US (occurrence: US)
  Receive Date: 20160912
  Receipt Date: 20160912
  Transmission Date: 20161109
  Serious: No
  Sender: FDA-Public Use
  Company Number: US-BAYER-2016-173317

PATIENT
  Age: 76 Year
  Sex: Female
  Weight: 70.3 kg

DRUGS (3)
  1. FLAXSEED [Concomitant]
     Active Substance: FLAX SEED
     Dosage: UNK
  2. VITAMIN D [Concomitant]
     Active Substance: CHOLECALCIFEROL
     Dosage: UNK
  3. MIRALAX [Suspect]
     Active Substance: POLYETHYLENE GLYCOL 3350
     Indication: BOWEL MOVEMENT IRREGULARITY
     Dosage: 3/4 OF A DOSE, UNK
     Route: 048
     Dates: start: 2014

REACTIONS (2)
  - Incorrect product storage [None]
  - Product use issue [None]

NARRATIVE: CASE EVENT DATE: 2014
